FAERS Safety Report 5393678-X (Version None)
Quarter: 2007Q3

REPORT INFORMATION
  Report Type: 
  Country: None (occurrence: None)
  Receive Date: 20070720
  Receipt Date: 20070720
  Transmission Date: 20080115
  Serious: Yes (Hospitalization)
  Sender: FDA-Public Use
  Company Number: None

PATIENT
  Age: 49 Year
  Sex: Male
  Weight: 102.0593 kg

DRUGS (26)
  1. FENTANYL TRANSDERMAL SYSTEM [Suspect]
     Indication: BACK PAIN
     Dosage: 1 (PATCH) 100 MCG/H 2 X DAYS 061
     Route: 062
     Dates: start: 20060501
  2. FENTANYL TRANSDERMAL SYSTEM [Suspect]
     Indication: PAIN IN EXTREMITY
     Dosage: 1 (PATCH) 100 MCG/H 2 X DAYS 061
     Route: 062
     Dates: start: 20060501
  3. FENTANYL TRANSDERMAL SYSTEM [Suspect]
     Indication: SPINAL OPERATION
     Dosage: 1 (PATCH) 100 MCG/H 2 X DAYS 061
     Route: 062
     Dates: start: 20060501
  4. FENTANYL TRANSDERMAL SYSTEM [Suspect]
     Indication: BACK PAIN
     Dosage: 1 (PATCH) 100 MCG/H 2 X DAYS 061
     Route: 062
     Dates: start: 20070501
  5. FENTANYL TRANSDERMAL SYSTEM [Suspect]
     Indication: PAIN IN EXTREMITY
     Dosage: 1 (PATCH) 100 MCG/H 2 X DAYS 061
     Route: 062
     Dates: start: 20070501
  6. FENTANYL TRANSDERMAL SYSTEM [Suspect]
     Indication: SPINAL OPERATION
     Dosage: 1 (PATCH) 100 MCG/H 2 X DAYS 061
     Route: 062
     Dates: start: 20070501
  7. FENTANYL TRANSDERMAL SYSTEM [Suspect]
     Indication: BACK PAIN
     Dosage: 1 (PATCH) 100 MCG/H 2 X DAYS 061
     Route: 062
     Dates: start: 20050701
  8. FENTANYL TRANSDERMAL SYSTEM [Suspect]
     Indication: PAIN IN EXTREMITY
     Dosage: 1 (PATCH) 100 MCG/H 2 X DAYS 061
     Route: 062
     Dates: start: 20050701
  9. FENTANYL TRANSDERMAL SYSTEM [Suspect]
     Indication: SPINAL OPERATION
     Dosage: 1 (PATCH) 100 MCG/H 2 X DAYS 061
     Route: 062
     Dates: start: 20050701
  10. FENTANYL TRANSDERMAL SYSTEM [Suspect]
     Indication: BACK PAIN
     Dosage: 1 (PATCH) 100 MCG/H 2 X DAYS 061
     Route: 062
     Dates: start: 20051201
  11. FENTANYL TRANSDERMAL SYSTEM [Suspect]
     Indication: PAIN IN EXTREMITY
     Dosage: 1 (PATCH) 100 MCG/H 2 X DAYS 061
     Route: 062
     Dates: start: 20051201
  12. FENTANYL TRANSDERMAL SYSTEM [Suspect]
     Indication: SPINAL OPERATION
     Dosage: 1 (PATCH) 100 MCG/H 2 X DAYS 061
     Route: 062
     Dates: start: 20051201
  13. FENTANYL TRANSDERMAL SYSTEM [Suspect]
     Indication: BACK PAIN
     Dosage: 1 (PATCH) 100 MCG/H 2 X DAYS 061
     Route: 062
     Dates: start: 20050801
  14. FENTANYL TRANSDERMAL SYSTEM [Suspect]
     Indication: PAIN IN EXTREMITY
     Dosage: 1 (PATCH) 100 MCG/H 2 X DAYS 061
     Route: 062
     Dates: start: 20050801
  15. FENTANYL TRANSDERMAL SYSTEM [Suspect]
     Indication: SPINAL OPERATION
     Dosage: 1 (PATCH) 100 MCG/H 2 X DAYS 061
     Route: 062
     Dates: start: 20050801
  16. VICADINE [Concomitant]
  17. LORATADINE [Concomitant]
  18. FLUVASTATINE [Concomitant]
  19. ATENOLOL [Concomitant]
  20. DESIPRAMINE HCL [Concomitant]
  21. HYDROCHLOROTHIAZIDE [Concomitant]
  22. OMEPRAZOLE [Concomitant]
  23. ZANAFLEX [Concomitant]
  24. LYRICA [Concomitant]
  25. LIDODERM [Concomitant]
  26. FENTANYL TRANSDERMAL SYSTEM [Concomitant]

REACTIONS (11)
  - ASTHENIA [None]
  - BLOOD POTASSIUM DECREASED [None]
  - BLOOD PRESSURE DECREASED [None]
  - DIPLOPIA [None]
  - DYSSTASIA [None]
  - FEELING ABNORMAL [None]
  - PHARMACEUTICAL PRODUCT COMPLAINT [None]
  - STRESS [None]
  - URINARY RETENTION [None]
  - VISION BLURRED [None]
  - WHITE BLOOD CELL COUNT INCREASED [None]
